FAERS Safety Report 10048704 (Version 1)
Quarter: 2014Q1

REPORT INFORMATION
  Report Type: Report from Study
  Country: CA (occurrence: CA)
  Receive Date: 20140331
  Receipt Date: 20140331
  Transmission Date: 20141002
  Serious: Yes (Other)
  Sender: FDA-Public Use
  Company Number: CA-VERTEX PHARMACEUTICALS INC-2014-001703

PATIENT
  Age: 55 Year
  Sex: Male

DRUGS (8)
  1. VX-950 (TELAPREVIR) [Suspect]
     Indication: CHRONIC HEPATITIS C
     Dosage: 750 MG, TID
     Route: 048
     Dates: start: 20130914, end: 20131126
  2. Z-RIBAVIRIN [Suspect]
     Indication: CHRONIC HEPATITIS C
     Dosage: 1000 MG, QD
     Route: 048
     Dates: start: 20130914, end: 20131129
  3. PEGINTERFERON LAMBDA-1A [Suspect]
     Indication: CHRONIC HEPATITIS C
     Dosage: 180 ?G, QW
     Route: 058
     Dates: start: 20130913
  4. Z-PEGYLATED INTERFERON-2A [Suspect]
     Indication: CHRONIC HEPATITIS C
     Dosage: 180 ?G, QW
     Route: 058
     Dates: start: 20130913
  5. ARTHROTEC [Concomitant]
     Dosage: UNK
     Dates: start: 20130813
  6. ATARAX [Concomitant]
     Dosage: UNK
     Dates: start: 20131107
  7. CEFADROXIL [Concomitant]
     Dosage: UNK
     Dates: start: 20131126
  8. BETAMETHASONE VALERATE [Concomitant]
     Dosage: UNK
     Dates: start: 20131107

REACTIONS (1)
  - Rash [Recovered/Resolved]
